FAERS Safety Report 5332361-3 (Version None)
Quarter: 2007Q2

REPORT INFORMATION
  Report Type: 
  Country: None (occurrence: None)
  Receive Date: 20070523
  Receipt Date: 20070522
  Transmission Date: 20071010
  Serious: Yes (Disabling, Other)
  Sender: FDA-Public Use
  Company Number: A0652401A

PATIENT
  Age: 65 Year
  Sex: Male

DRUGS (5)
  1. AVANDARYL [Suspect]
     Dosage: 1TAB TWICE PER DAY
     Route: 048
     Dates: start: 20060101
  2. AVANDIA [Suspect]
     Dosage: 4MG TWICE PER DAY
     Route: 048
     Dates: start: 20050101, end: 20060101
  3. DIGOXIN [Concomitant]
  4. SYNTHROID [Concomitant]
  5. JANUVIA [Concomitant]

REACTIONS (4)
  - BLOOD GLUCOSE INCREASED [None]
  - ECZEMA [None]
  - OEDEMA PERIPHERAL [None]
  - SKIN ULCER [None]
